FAERS Safety Report 6763541-8 (Version None)
Quarter: 2010Q2

REPORT INFORMATION
  Report Type: 
  Country: None (occurrence: None)
  Receive Date: 20100610
  Receipt Date: 20100528
  Transmission Date: 20101027
  Serious: Yes (Hospitalization)
  Sender: FDA-Public Use
  Company Number: PHHY2010GB21747

PATIENT
  Sex: Male

DRUGS (4)
  1. CLOZARIL [Suspect]
     Indication: SCHIZOPHRENIA
     Dosage: 700 MG DAILY
     Route: 048
     Dates: start: 20031109
  2. CLOZARIL [Suspect]
     Dosage: UNK
  3. CITALOPRAM [Concomitant]
     Indication: DEPRESSION
     Dosage: 20MG/DAY
     Route: 048
  4. CITALOPRAM [Concomitant]
     Indication: ANXIETY

REACTIONS (3)
  - HYPONATRAEMIA [None]
  - MENTAL DISORDER [None]
  - SCHIZOPHRENIA [None]
